FAERS Safety Report 5301475-6 (Version None)
Quarter: 2007Q2

REPORT INFORMATION
  Report Type: 
  Country: None (occurrence: None)
  Receive Date: 20070412
  Receipt Date: 20070405
  Transmission Date: 20071010
  Serious: Yes (Death, Hospitalization)
  Sender: FDA-Public Use
  Company Number: E2020-01141-SPO-US

PATIENT
  Sex: Male

DRUGS (7)
  1. ARICEPT [Suspect]
     Indication: MEMORY IMPAIRMENT
     Dosage: 5 MG, 1 IN 1 D; ORAL
     Route: 048
     Dates: start: 20070301, end: 20070404
  2. VYTORIN EZETIMIBELSIMVASTAT [Concomitant]
  3. IRON (IRON) [Concomitant]
  4. FOLIC ACID [Concomitant]
  5. COUMADIN [Concomitant]
  6. INSULIN (INSULIN) [Concomitant]
  7. ATACAND [Concomitant]

REACTIONS (10)
  - ASTHENIA [None]
  - BACK PAIN [None]
  - BLOOD GLUCOSE INCREASED [None]
  - CARDIAC DISORDER [None]
  - DIARRHOEA [None]
  - GASTRIC PH INCREASED [None]
  - INTERNATIONAL NORMALISED RATIO INCREASED [None]
  - MYOCARDIAL INFARCTION [None]
  - NAUSEA [None]
  - VOMITING [None]
